FAERS Safety Report 14855005 (Version 1)
Quarter: 2018Q2

REPORT INFORMATION
  Report Type: Spontaneous
  Country: US (occurrence: US)
  Receive Date: 20180507
  Receipt Date: 20180507
  Transmission Date: 20180711
  Serious: No
  Sender: FDA-Public Use
  Company Number: US-ROCHE-1931191

PATIENT
  Sex: Male

DRUGS (1)
  1. ESBRIET [Suspect]
     Active Substance: PIRFENIDONE
     Indication: IDIOPATHIC PULMONARY FIBROSIS
     Dosage: 1 CAPSULE (267MG) THREE TIMES DAILY ;ONGOING: YES
     Route: 048
     Dates: start: 20170428

REACTIONS (1)
  - Flatulence [Recovering/Resolving]

NARRATIVE: CASE EVENT DATE: 20170430
